FAERS Safety Report 10189327 (Version 1)
Quarter: 2014Q2

REPORT INFORMATION
  Report Type: Spontaneous
  Country: US (occurrence: None)
  Receive Date: 20140521
  Receipt Date: 20140521
  Transmission Date: 20141212
  Serious: No
  Sender: FDA-Public Use
  Company Number: None

PATIENT
  Age: 49 Year
  Sex: Male
  Weight: 102.06 kg

DRUGS (1)
  1. LAMICTAL 200 MG [Suspect]
     Indication: BIPOLAR DISORDER
     Dosage: 2 PILLS, QHS/BEDTIME
     Route: 048

REACTIONS (4)
  - Product substitution issue [None]
  - Drug effect decreased [None]
  - Mania [None]
  - Judgement impaired [None]
